FAERS Safety Report 5656243-2 (Version None)
Quarter: 2008Q1

REPORT INFORMATION
  Report Type: 
  Country: None (occurrence: None)
  Receive Date: 20080305
  Receipt Date: 20080218
  Transmission Date: 20080703
  Serious: Yes (Hospitalization)
  Sender: FDA-Public Use
  Company Number: 2007PV000050

PATIENT
  Age: 65 Year
  Sex: Female
  Weight: 105 kg

DRUGS (1)
  1. CYTARABINE [Suspect]
     Indication: NON-HODGKIN'S LYMPHOMA RECURRENT
     Dosage: 50 MG; QOW; INTH
     Route: 037
     Dates: start: 20070921, end: 20071102

REACTIONS (3)
  - CEREBRAL VENTRICLE DILATATION [None]
  - HYDROCEPHALUS [None]
  - PNEUMOCYSTIS JIROVECI PNEUMONIA [None]
